FAERS Safety Report 16905073 (Version 1)
Quarter: 2019Q4

REPORT INFORMATION
  Report Type: Spontaneous
  Country: US (occurrence: US)
  Receive Date: 20191010
  Receipt Date: 20191010
  Transmission Date: 20200122
  Serious: Yes (Other)
  Sender: FDA-Public Use
  Company Number: None

PATIENT
  Age: 49 Year
  Sex: Female
  Weight: 57.9 kg

DRUGS (4)
  1. PROMETHAZINE 6.25 MG IV PUSH [Concomitant]
     Dates: start: 20191009, end: 20191009
  2. SOLUMEDROL 125 MG IV PUSH [Concomitant]
     Dates: start: 20191009, end: 20191009
  3. ANAVIP [Suspect]
     Active Substance: PIT VIPER (CROTALINAE) IMMUNE GLOBULIN ANTIVENIN (EQUINE)
     Indication: SNAKE BITE
     Dosage: ?          OTHER FREQUENCY:ONCE;?
     Route: 041
     Dates: start: 20191009, end: 20191009
  4. DIPHENHYDRAMINE 25 MG IV PUSH [Concomitant]
     Dates: start: 20191009, end: 20191009

REACTIONS (7)
  - Infusion related reaction [None]
  - Chest pain [None]
  - Nausea [None]
  - Hypotension [None]
  - Chest discomfort [None]
  - Vomiting projectile [None]
  - Bradycardia [None]

NARRATIVE: CASE EVENT DATE: 20191009
